FAERS Safety Report 6519503-9 (Version None)
Quarter: 2009Q4

REPORT INFORMATION
  Report Type: 
  Country: None (occurrence: None)
  Receive Date: 20091228
  Receipt Date: 20091214
  Transmission Date: 20100525
  Serious: Yes (Hospitalization)
  Sender: FDA-Public Use
  Company Number: AR-PFIZER INC-2009302097

PATIENT
  Sex: Female
  Weight: 96 kg

DRUGS (6)
  1. SUNITINIB MALATE [Suspect]
     Indication: METASTATIC RENAL CELL CARCINOMA
     Dosage: 25 MG, 1X/DAY, EVERY DAY, 4 WEEKS ON, 2 OFF
     Route: 048
     Dates: start: 20060516, end: 20091118
  2. AMLODIPINE [Concomitant]
     Dosage: UNK
     Route: 048
     Dates: start: 20000701
  3. ATENOLOL [Concomitant]
     Dosage: UNK
     Route: 048
     Dates: start: 20000701
  4. LOSARTAN [Concomitant]
     Dosage: UNK
     Route: 048
     Dates: start: 20000701
  5. BENAZEPRIL [Concomitant]
     Dosage: UNK
     Route: 048
     Dates: start: 20090101
  6. METOCLOPRAMIDE [Concomitant]
     Dosage: UNK
     Route: 048
     Dates: start: 20091118, end: 20091118

REACTIONS (1)
  - GASTRODUODENITIS [None]
